FAERS Safety Report 14603693 (Version 1)
Quarter: 2018Q1

REPORT INFORMATION
  Report Type: Spontaneous
  Country: US (occurrence: US)
  Receive Date: 20180306
  Receipt Date: 20180306
  Transmission Date: 20180509
  Serious: No
  Sender: FDA-Public Use
  Company Number: US-MYLANLABS-2018M1010978

PATIENT
  Sex: Female

DRUGS (1)
  1. ESTRADIOL. [Suspect]
     Active Substance: ESTRADIOL
     Indication: UTERINE LEIOMYOMA
     Dosage: UNK UNK, QW
     Route: 062

REACTIONS (2)
  - No adverse event [Unknown]
  - Off label use [Unknown]
